FAERS Safety Report 9414235 (Version 1)
Quarter: 2013Q3

REPORT INFORMATION
  Report Type: Spontaneous
  Country: US (occurrence: US)
  Receive Date: 20130723
  Receipt Date: 20130723
  Transmission Date: 20140515
  Serious: No
  Sender: FDA-Public Use
  Company Number: US-009507513-1307USA010436

PATIENT
  Age: 53 Year
  Sex: Female

DRUGS (3)
  1. SAPHRIS [Suspect]
     Indication: BIPOLAR DISORDER
     Dosage: DOSE: 10MG AND 15MG, BOTH FREQUENCY UNSPECIFIED
     Route: 060
     Dates: start: 201303, end: 20130703
  2. SEROQUEL [Concomitant]
  3. PROZAC [Concomitant]

REACTIONS (1)
  - Hyperhidrosis [Recovered/Resolved]
